FAERS Safety Report 5448267-5 (Version None)
Quarter: 2007Q3

REPORT INFORMATION
  Report Type: 
  Country: None (occurrence: None)
  Receive Date: 20070911
  Receipt Date: 20070904
  Transmission Date: 20080115
  Serious: Yes (Other)
  Sender: FDA-Public Use
  Company Number: PHBS2007BR14648

PATIENT
  Age: 24 Year
  Sex: Female
  Weight: 63 kg

DRUGS (1)
  1. METHERGINE [Suspect]
     Indication: UTERINE ATONY
     Dosage: 0.125 MG, TID
     Route: 048
     Dates: start: 20070904

REACTIONS (9)
  - ABDOMINAL PAIN UPPER [None]
  - COLD SWEAT [None]
  - DIZZINESS [None]
  - DRUG EXPOSURE VIA BREAST MILK [None]
  - DYSSTASIA [None]
  - HYPERHIDROSIS [None]
  - NAUSEA [None]
  - PRESYNCOPE [None]
  - TREMOR [None]
